FAERS Safety Report 20729213 (Version 5)
Quarter: 2022Q4

REPORT INFORMATION
  Report Type: Report from Study
  Country: US (occurrence: US)
  Receive Date: 20220420
  Receipt Date: 20221031
  Transmission Date: 20230112
  Serious: Yes (Hospitalization)
  Sender: FDA-Public Use
  Company Number: US-NOVARTISPH-NVSC2021US057591

PATIENT
  Age: 62 Year
  Sex: Male
  Weight: 70.9 kg

DRUGS (52)
  1. ISCALIMAB [Suspect]
     Active Substance: ISCALIMAB
     Indication: Liver transplant
     Dosage: 1884 MG, ONCE
     Route: 042
     Dates: start: 20200605
  2. ISCALIMAB [Suspect]
     Active Substance: ISCALIMAB
     Dosage: 300 MG, Q2W (ONCE IN 2 WEEKS)
     Route: 058
     Dates: start: 20200625
  3. TACROLIMUS [Suspect]
     Active Substance: TACROLIMUS
     Indication: Liver transplant
     Dosage: 4 MG, QD
     Route: 048
     Dates: start: 20200605
  4. ALBUTEROL [Concomitant]
     Active Substance: ALBUTEROL
     Indication: Obstructive airways disorder
     Dosage: UNK
     Route: 065
     Dates: start: 201904
  5. MIRALAX [Concomitant]
     Active Substance: POLYETHYLENE GLYCOL 3350
     Indication: Constipation prophylaxis
     Dosage: UNK
     Route: 065
     Dates: start: 20200601
  6. CALCIUM\VITAMIN D [Concomitant]
     Active Substance: CALCIUM\VITAMIN D
     Indication: Vitamin D deficiency
     Dosage: UNK
     Route: 065
     Dates: start: 20200609
  7. INSULIN LISPRO [Concomitant]
     Active Substance: INSULIN LISPRO
     Indication: Hyperglycaemia
     Dosage: UNK
     Route: 065
     Dates: start: 20200609, end: 20210710
  8. NPH INSULIN [Concomitant]
     Active Substance: INSULIN BEEF
     Indication: Hyperglycaemia
     Dosage: 100 UNIT/ML
     Route: 065
     Dates: start: 20200609
  9. PREDNISONE [Concomitant]
     Active Substance: PREDNISONE
     Indication: Prophylaxis against transplant rejection
     Dosage: UNK
     Route: 065
     Dates: start: 20200701
  10. OSCAL D [Concomitant]
     Active Substance: CALCIUM CARBONATE\CHOLECALCIFEROL
     Indication: Vitamin D deficiency
     Dosage: UNK
     Route: 065
     Dates: start: 20200606
  11. FERROUS SULFATE [Concomitant]
     Active Substance: FERROUS SULFATE
     Indication: Anaemia
     Dosage: UNK
     Route: 065
     Dates: start: 20200621
  12. FERROUS SULFATE [Concomitant]
     Active Substance: FERROUS SULFATE
     Dosage: UNK
     Route: 065
     Dates: start: 20201201
  13. TRAZODONE [Concomitant]
     Active Substance: TRAZODONE HYDROCHLORIDE
     Indication: Depression
     Dosage: UNK
     Route: 065
     Dates: start: 20201203
  14. SYMBICORT [Concomitant]
     Active Substance: BUDESONIDE\FORMOTEROL FUMARATE DIHYDRATE
     Indication: Obstructive airways disorder
     Dosage: UNK
     Route: 065
     Dates: start: 201904
  15. DILTIAZEM [Concomitant]
     Active Substance: DILTIAZEM
     Indication: Prophylaxis
     Dosage: UNK
     Route: 065
     Dates: start: 20210107, end: 20210321
  16. LOPRESSOR [Concomitant]
     Active Substance: METOPROLOL TARTRATE
     Indication: Ventricular tachycardia
     Dosage: UNK
     Route: 065
     Dates: start: 20210316, end: 20210316
  17. LOPRESSOR [Concomitant]
     Active Substance: METOPROLOL TARTRATE
     Indication: Prophylaxis
     Dosage: UNK
     Route: 065
     Dates: start: 20210321
  18. LOPRESSOR [Concomitant]
     Active Substance: METOPROLOL TARTRATE
     Indication: Atrial fibrillation
  19. ZOLOFT [Concomitant]
     Active Substance: SERTRALINE HYDROCHLORIDE
     Indication: Depression
     Dosage: UNK
     Route: 065
     Dates: start: 20210225, end: 20210505
  20. ZOLOFT [Concomitant]
     Active Substance: SERTRALINE HYDROCHLORIDE
     Dosage: UNK
     Route: 065
     Dates: start: 20210317, end: 20210322
  21. LASIX [Concomitant]
     Active Substance: FUROSEMIDE
     Indication: Liver transplant
     Dosage: UNK
     Route: 065
     Dates: start: 20210313, end: 20210314
  22. LASIX [Concomitant]
     Active Substance: FUROSEMIDE
     Indication: Hypervolaemia
     Dosage: UNK
     Route: 065
     Dates: start: 20210319, end: 20210322
  23. LASIX [Concomitant]
     Active Substance: FUROSEMIDE
     Dosage: UNK
     Route: 065
     Dates: start: 20210201, end: 20210429
  24. METRONIDAZOLE [Concomitant]
     Active Substance: METRONIDAZOLE
     Indication: Infection prophylaxis
     Dosage: UNK
     Route: 065
     Dates: start: 20210310, end: 20210311
  25. ACETAMINOPHEN [Concomitant]
     Active Substance: ACETAMINOPHEN
     Indication: Abdominal pain
     Dosage: UNK
     Route: 065
     Dates: start: 20201015, end: 20210325
  26. ACETAMINOPHEN [Concomitant]
     Active Substance: ACETAMINOPHEN
     Indication: Incisional hernia
     Route: 065
     Dates: start: 20210310, end: 20210310
  27. ACETAMINOPHEN [Concomitant]
     Active Substance: ACETAMINOPHEN
     Route: 065
     Dates: start: 20210313, end: 20210313
  28. ACETAMINOPHEN [Concomitant]
     Active Substance: ACETAMINOPHEN
     Route: 065
     Dates: start: 20210316, end: 20210316
  29. BISACODYL [Concomitant]
     Active Substance: BISACODYL
     Indication: Constipation prophylaxis
     Dosage: UNK
     Route: 065
     Dates: start: 20210313, end: 20210313
  30. BISACODYL [Concomitant]
     Active Substance: BISACODYL
     Dosage: UNK
     Route: 065
     Dates: start: 20210318, end: 20210325
  31. ROCEPHIN [Concomitant]
     Active Substance: CEFTRIAXONE SODIUM
     Indication: Infection prophylaxis
     Dosage: UNK
     Route: 065
     Dates: start: 20210316, end: 20210316
  32. RISPERIDONE [Concomitant]
     Active Substance: RISPERIDONE
     Indication: Prophylaxis
     Dosage: UNK
     Route: 065
     Dates: start: 201906
  33. HEPARIN [Concomitant]
     Active Substance: HEPARIN SODIUM
     Indication: Thrombosis prophylaxis
     Dosage: UNK
     Route: 065
     Dates: start: 20210313, end: 20210326
  34. LINEZOLID [Concomitant]
     Active Substance: LINEZOLID
     Indication: Candida infection
     Dosage: UNK
     Route: 065
     Dates: start: 20210323, end: 20210327
  35. POLYETHYLENE GLYCOL [Concomitant]
     Active Substance: POLYETHYLENE GLYCOL
     Indication: Liver transplant
     Dosage: UNK
     Route: 065
     Dates: start: 20210313, end: 20210314
  36. POTASSIUM CHLORIDE [Concomitant]
     Active Substance: POTASSIUM CHLORIDE
     Indication: Hypokalaemia
     Dosage: UNK
     Route: 065
     Dates: start: 20210318, end: 20210327
  37. ROPINIROLE [Concomitant]
     Active Substance: ROPINIROLE
     Indication: Restless legs syndrome
     Dosage: UNK
     Route: 065
     Dates: start: 20210318, end: 20210326
  38. ROPINIROLE [Concomitant]
     Active Substance: ROPINIROLE
     Dosage: UNK
     Route: 065
     Dates: start: 20210313, end: 20210314
  39. K PHOS NEUTRAL [Concomitant]
     Active Substance: POTASSIUM PHOSPHATE, MONOBASIC\SODIUM PHOSPHATE, DIBASIC, ANHYDROUS\SODIUM PHOSPHATE, MONOBASIC, MON
     Indication: Hypophosphataemia
     Dosage: UNK
     Route: 065
     Dates: start: 20210321, end: 20210321
  40. ZOLPIDEM [Concomitant]
     Active Substance: ZOLPIDEM TARTRATE
     Indication: Insomnia
     Dosage: UNK
     Route: 065
     Dates: start: 20210225
  41. CIPROFLOXACIN [Concomitant]
     Active Substance: CIPROFLOXACIN
     Indication: Infection prophylaxis
     Dosage: UNK
     Route: 065
     Dates: start: 20210310, end: 20210511
  42. DOCUSATE SODIUM [Concomitant]
     Active Substance: DOCUSATE SODIUM
     Indication: Constipation prophylaxis
     Dosage: UNK
     Route: 065
     Dates: start: 20200609
  43. ROBAXIN [Concomitant]
     Active Substance: METHOCARBAMOL
     Indication: Incisional hernia
     Dosage: UNK
     Route: 065
     Dates: start: 20210310, end: 20210311
  44. AMPICILLIN [Concomitant]
     Active Substance: AMPICILLIN
     Indication: Infection prophylaxis
     Dosage: UNK
     Route: 065
     Dates: start: 20210315, end: 20210315
  45. AMPICILLIN [Concomitant]
     Active Substance: AMPICILLIN
     Dosage: UNK
     Route: 065
     Dates: start: 20210316, end: 20210316
  46. AMPICILLIN [Concomitant]
     Active Substance: AMPICILLIN
     Dosage: UNK
     Route: 065
     Dates: start: 20210317, end: 20210317
  47. CEFTRIAXONE [Concomitant]
     Active Substance: CEFTRIAXONE
     Indication: Infection prophylaxis
     Dosage: UNK
     Route: 065
     Dates: start: 20210316, end: 20210316
  48. FAMOTIDINE [Concomitant]
     Active Substance: FAMOTIDINE
     Indication: Prophylaxis
     Dosage: UNK
     Route: 065
     Dates: start: 20200529
  49. GABAPENTIN [Concomitant]
     Active Substance: GABAPENTIN
     Indication: Procedural pain
     Dosage: UNK
     Route: 065
     Dates: start: 20200530
  50. CALCIUM GLUCONATE [Concomitant]
     Active Substance: CALCIUM GLUCONATE
     Indication: Vitamin D deficiency
     Dosage: UNK
     Route: 065
     Dates: start: 20210316, end: 20210316
  51. MAGNESIUM SULFATE [Concomitant]
     Active Substance: MAGNESIUM SULFATE
     Indication: Prophylaxis
     Dosage: UNK
     Route: 065
     Dates: start: 20210316, end: 20210316
  52. MAGNESIUM SULFATE [Concomitant]
     Active Substance: MAGNESIUM SULFATE
     Dosage: UNK
     Route: 065
     Dates: start: 20210321, end: 20210326

REACTIONS (4)
  - Enterococcal infection [Recovered/Resolved]
  - Abdominal pain [Recovered/Resolved]
  - Incisional hernia [Recovered/Resolved]
  - Ileus [Recovered/Resolved]

NARRATIVE: CASE EVENT DATE: 20210310
